FAERS Safety Report 4409280-X (Version None)
Quarter: 2004Q3

REPORT INFORMATION
  Report Type: 
  Country: None (occurrence: None)
  Receive Date: 20040728
  Receipt Date: 20040602
  Transmission Date: 20050211
  Serious: Yes (Death)
  Sender: FDA-Public Use
  Company Number: ES-MERCK-0406ESP00010

PATIENT
  Age: 52 Year
  Sex: Male

DRUGS (3)
  1. ASPIRIN [Concomitant]
     Route: 048
     Dates: start: 19941001, end: 20040509
  2. ATORVASTATIN CALCIUM [Concomitant]
     Indication: TYPE IIA HYPERLIPIDAEMIA
     Route: 048
     Dates: start: 20030331, end: 20040509
  3. ZETIA [Suspect]
     Indication: TYPE IIA HYPERLIPIDAEMIA
     Route: 048
     Dates: start: 20040401, end: 20040509

REACTIONS (3)
  - BLOOD CHOLESTEROL INCREASED [None]
  - CORONARY BYPASS THROMBOSIS [None]
  - GRAFT THROMBOSIS [None]
